FAERS Safety Report 22601952 (Version 3)
Quarter: 2023Q4

REPORT INFORMATION
  Report Type: Spontaneous
  Country: US (occurrence: None)
  Receive Date: 20230614
  Receipt Date: 20231227
  Transmission Date: 20240110
  Serious: Yes (Life-Threatening, Hospitalization, Other)
  Sender: FDA-Public Use
  Company Number: 2023A135649

PATIENT
  Age: 44 Year
  Sex: Male
  Weight: 108.4 kg

DRUGS (2)
  1. FARXIGA [Suspect]
     Active Substance: DAPAGLIFLOZIN PROPANEDIOL
     Route: 048
     Dates: start: 20230516, end: 20230525
  2. ROSUVASTATIN [Suspect]
     Active Substance: ROSUVASTATIN
     Route: 048
     Dates: start: 20230516

REACTIONS (14)
  - Diabetic ketoacidosis [Recovered/Resolved]
  - Asthenia [Unknown]
  - Vomiting [Unknown]
  - Incoherent [Unknown]
  - Dehydration [Unknown]
  - Cerebrovascular accident [Unknown]
  - Illness [Unknown]
  - Blood glucose decreased [Unknown]
  - Headache [Unknown]
  - Haemorrhoids [Unknown]
  - Constipation [Unknown]
  - Cystitis [Unknown]
  - Urinary tract infection [Unknown]
  - Wound [Unknown]

NARRATIVE: CASE EVENT DATE: 20230524
